FAERS Safety Report 11106340 (Version 1)
Quarter: 2015Q2

REPORT INFORMATION
  Report Type: Spontaneous
  Country: US (occurrence: None)
  Receive Date: 20150508
  Receipt Date: 20150508
  Transmission Date: 20150821
  Serious: Yes (Hospitalization)
  Sender: FDA-Public Use
  Company Number: US-ZYDUS-007818

PATIENT
  Age: 69 Year
  Sex: Male

DRUGS (1)
  1. CARVEDILOL (CARVEDILOL) [Suspect]
     Active Substance: CARVEDILOL
     Indication: PRODUCT USED FOR UNKNOWN INDICATION
     Route: 048

REACTIONS (4)
  - Hyperkalaemia [None]
  - Nausea [None]
  - Abdominal pain [None]
  - Vomiting [None]
